FAERS Safety Report 12194816 (Version 1)
Quarter: 2016Q1

REPORT INFORMATION
  Report Type: Spontaneous
  Country: US (occurrence: US)
  Receive Date: 20160321
  Receipt Date: 20160321
  Transmission Date: 20160526
  Serious: No
  Sender: FDA-Public Use
  Company Number: US-GLAXOSMITHKLINE-US2016039037

PATIENT
  Sex: Male

DRUGS (2)
  1. FLONASE [Suspect]
     Active Substance: FLUTICASONE PROPIONATE
     Indication: HEADACHE
     Dosage: UNK
     Dates: start: 20160315
  2. FLONASE [Suspect]
     Active Substance: FLUTICASONE PROPIONATE
     Indication: OCULAR DISCOMFORT

REACTIONS (1)
  - Drug ineffective for unapproved indication [Unknown]
